FAERS Safety Report 12334035 (Version 3)
Quarter: 2016Q2

REPORT INFORMATION
  Report Type: Spontaneous
  Country: US (occurrence: US)
  Receive Date: 20160504
  Receipt Date: 20160531
  Transmission Date: 20160815
  Serious: Yes (Other)
  Sender: FDA-Public Use
  Company Number: US-ASTELLAS-2016US000081

PATIENT
  Age: 83 Year
  Sex: Male

DRUGS (2)
  1. XTANDI [Suspect]
     Active Substance: ENZALUTAMIDE
     Indication: HORMONE-REFRACTORY PROSTATE CANCER
     Dosage: 160 MG (4 X 40 MG), ONCE DAILY
     Route: 048
     Dates: start: 20151212, end: 20160506
  2. XTANDI [Suspect]
     Active Substance: ENZALUTAMIDE
     Indication: PROSTATE CANCER METASTATIC

REACTIONS (22)
  - Musculoskeletal discomfort [Recovered/Resolved]
  - Nausea [Recovered/Resolved]
  - Dry mouth [Unknown]
  - Arthralgia [Recovered/Resolved]
  - Dizziness [Unknown]
  - Dysgeusia [Not Recovered/Not Resolved]
  - Muscular weakness [Unknown]
  - Fatigue [Recovering/Resolving]
  - Hot flush [Recovered/Resolved]
  - Prostatic specific antigen increased [Unknown]
  - Productive cough [Unknown]
  - Dysgeusia [Unknown]
  - Decreased appetite [Unknown]
  - Ureteral stent insertion [Unknown]
  - Urinary incontinence [Recovered/Resolved]
  - Pollakiuria [Not Recovered/Not Resolved]
  - Dizziness [Recovered/Resolved]
  - Malignant neoplasm progression [Unknown]
  - Weight decreased [Not Recovered/Not Resolved]
  - Decreased appetite [Not Recovered/Not Resolved]
  - Constipation [Not Recovered/Not Resolved]
  - Constipation [Unknown]

NARRATIVE: CASE EVENT DATE: 201512
